FAERS Safety Report 21707362 (Version 1)
Quarter: 2022Q4

REPORT INFORMATION
  Report Type: Spontaneous
  Country: CN (occurrence: None)
  Receive Date: 20221209
  Receipt Date: 20221209
  Transmission Date: 20230112
  Serious: Yes (Life-Threatening, Hospitalization)
  Sender: FDA-Public Use
  Company Number: 2022A401852

PATIENT
  Age: 26126 Day
  Sex: Female

DRUGS (3)
  1. OSIMERTINIB MESYLATE [Suspect]
     Active Substance: OSIMERTINIB MESYLATE
     Indication: Lung neoplasm malignant
     Dosage: DOSE: 80.000000 MG; QD
     Route: 048
     Dates: start: 20221119, end: 20221122
  2. OPRELVEKIN [Concomitant]
     Active Substance: OPRELVEKIN
     Route: 065
  3. LEUCOGEN [Concomitant]
     Active Substance: LEUCOGEN
     Route: 048

REACTIONS (4)
  - Temperature intolerance [Unknown]
  - Condition aggravated [Unknown]
  - Tachypnoea [Unknown]
  - Platelet count decreased [Recovering/Resolving]

NARRATIVE: CASE EVENT DATE: 20221122
